FAERS Safety Report 25598377 (Version 1)
Quarter: 2025Q3

REPORT INFORMATION
  Report Type: Spontaneous
  Country: US (occurrence: US)
  Receive Date: 20250723
  Receipt Date: 20250723
  Transmission Date: 20251020
  Serious: No
  Sender: BIOMARIN
  Company Number: US-SA-2025SA200320

PATIENT
  Age: 7 Year
  Sex: Male

DRUGS (1)
  1. LARONIDASE [Suspect]
     Active Substance: LARONIDASE
     Indication: Mucopolysaccharidosis I
     Dosage: 14.5 UNK, QW
     Dates: start: 202301

REACTIONS (8)
  - Spinal disorder [Unknown]
  - Bone disorder [Unknown]
  - Condition aggravated [Unknown]
  - Joint contracture [Unknown]
  - Limb deformity [Unknown]
  - Heart valve incompetence [Unknown]
  - Tonsillectomy [Recovered/Resolved]
  - Adenoidectomy [Recovered/Resolved]

NARRATIVE: CASE EVENT DATE: 20240101
